FAERS Safety Report 4288761-6 (Version None)
Quarter: 2004Q1

REPORT INFORMATION
  Report Type: 
  Country: None (occurrence: None)
  Receive Date: 20040205
  Receipt Date: 20040123
  Transmission Date: 20041129
  Serious: Yes (Life-Threatening, Hospitalization)
  Sender: FDA-Public Use
  Company Number: 2004001335

PATIENT
  Age: 78 Year
  Sex: Male

DRUGS (7)
  1. DIFLUCAN [Suspect]
     Indication: PULMONARY MYCOSIS
     Dosage: 400 MG (DAILY), INTRAVENOUS
     Route: 042
     Dates: start: 20031217, end: 20040102
  2. UNASYN [Suspect]
     Indication: PNEUMONIA
     Dosage: (DAILY), INTRAVENOUS
     Route: 042
     Dates: start: 20031111, end: 20031118
  3. MINOCYCLINE HCL [Suspect]
     Indication: PNEUMONIA
     Dosage: 200 MG (TID), INTRAVENOUS
     Route: 042
     Dates: start: 20031223, end: 20031229
  4. METAMIZOLE SODIUM (METAMIZOLE SODIUM) [Concomitant]
  5. FOSFOMYCIN CALCIUM (FOSFOMYCIN CALCIUM) [Concomitant]
  6. DOPAMINE HCL [Concomitant]
  7. BROMHEXINE HYDROCHLORIDE (BROMHEXINE HYDROCHLORIDE) [Concomitant]

REACTIONS (5)
  - DEHYDRATION [None]
  - HEPATIC FUNCTION ABNORMAL [None]
  - JAUNDICE [None]
  - PYREXIA [None]
  - WHITE BLOOD CELL COUNT INCREASED [None]
